FAERS Safety Report 20746350 (Version 1)
Quarter: 2022Q2

REPORT INFORMATION
  Report Type: Spontaneous
  Country: US (occurrence: US)
  Receive Date: 20220425
  Receipt Date: 20220425
  Transmission Date: 20220721
  Serious: No
  Sender: FDA-Public Use
  Company Number: US-PFIZER INC-2021800057

PATIENT
  Age: 60 Year
  Sex: Female

DRUGS (1)
  1. GABAPENTIN [Suspect]
     Active Substance: GABAPENTIN
     Indication: Facial spasm
     Dosage: UNK, AS NEEDED
     Route: 065

REACTIONS (2)
  - Product use issue [Unknown]
  - Balance disorder [Unknown]
